FAERS Safety Report 24957859 (Version 1)
Quarter: 2025Q1

REPORT INFORMATION
  Report Type: Spontaneous
  Country: JP (occurrence: JP)
  Receive Date: 20250212
  Receipt Date: 20250212
  Transmission Date: 20250408
  Serious: Yes (Other)
  Sender: GLAND PHARMA LTD
  Company Number: JP-GLANDPHARMA-JP-2025GLNLIT00208

PATIENT
  Age: 85 Year
  Sex: Female

DRUGS (12)
  1. CISPLATIN [Suspect]
     Active Substance: CISPLATIN
     Indication: Adenocarcinoma gastric
     Route: 065
  2. CISPLATIN [Suspect]
     Active Substance: CISPLATIN
     Indication: Metastases to lung
  3. CISPLATIN [Suspect]
     Active Substance: CISPLATIN
     Indication: Metastases to peritoneum
  4. PACLITAXEL [Concomitant]
     Active Substance: PACLITAXEL
     Route: 065
  5. PACLITAXEL [Concomitant]
     Active Substance: PACLITAXEL
  6. PACLITAXEL [Concomitant]
     Active Substance: PACLITAXEL
  7. GIMERACIL\OTERACIL\TEGAFUR [Concomitant]
     Active Substance: GIMERACIL\OTERACIL POTASSIUM\TEGAFUR
     Route: 065
  8. GIMERACIL\OTERACIL\TEGAFUR [Concomitant]
     Active Substance: GIMERACIL\OTERACIL POTASSIUM\TEGAFUR
  9. GIMERACIL\OTERACIL\TEGAFUR [Concomitant]
     Active Substance: GIMERACIL\OTERACIL POTASSIUM\TEGAFUR
  10. RAMUCIRUMAB [Concomitant]
     Active Substance: RAMUCIRUMAB
     Route: 065
  11. RAMUCIRUMAB [Concomitant]
     Active Substance: RAMUCIRUMAB
  12. RAMUCIRUMAB [Concomitant]
     Active Substance: RAMUCIRUMAB

REACTIONS (3)
  - Myocardial injury [Unknown]
  - Condition aggravated [Unknown]
  - Product use in unapproved indication [Unknown]
